FAERS Safety Report 24446261 (Version 2)
Quarter: 2024Q4

REPORT INFORMATION
  Report Type: Spontaneous
  Country: RU (occurrence: RU)
  Receive Date: 20241016
  Receipt Date: 20241206
  Transmission Date: 20250115
  Serious: Yes (Hospitalization, Other)
  Sender: ALEXION PHARMACEUTICALS
  Company Number: RU-ASTRAZENECA-202409RUS011923RU

PATIENT
  Age: 1 Year

DRUGS (5)
  1. PULMICORT TURBUHALER [Suspect]
     Active Substance: BUDESONIDE
  2. PULMICORT TURBUHALER [Suspect]
     Active Substance: BUDESONIDE
  3. PULMICORT TURBUHALER [Suspect]
     Active Substance: BUDESONIDE
  4. PULMICORT TURBUHALER [Suspect]
     Active Substance: BUDESONIDE
  5. FENOTEROL HYDROBROMIDE\IPRATROPIUM BROMIDE [Concomitant]
     Active Substance: FENOTEROL HYDROBROMIDE\IPRATROPIUM BROMIDE

REACTIONS (3)
  - Laryngospasm [Recovered/Resolved]
  - Staphylococcal infection [Recovering/Resolving]
  - Herpes virus infection [Recovering/Resolving]
